FAERS Safety Report 10431688 (Version 2)
Quarter: 2014Q3

REPORT INFORMATION
  Report Type: Spontaneous
  Country: CH (occurrence: None)
  Receive Date: 20140903
  Receipt Date: 20140923
  Transmission Date: 20150326
  Serious: Yes (Hospitalization)
  Sender: FDA-Public Use
  Company Number: 20140571

PATIENT
  Age: 45 Year
  Sex: Male

DRUGS (11)
  1. ATRACURIUM [Concomitant]
     Active Substance: ATRACURIUM
  2. HEPARIN [Concomitant]
     Active Substance: HEPARIN SODIUM
  3. VENOFER [Suspect]
     Active Substance: IRON SUCROSE
     Indication: GASTROINTESTINAL HAEMORRHAGE
     Route: 042
     Dates: start: 201212, end: 201301
  4. ERYTHROPOIETIN [Suspect]
     Active Substance: ERYTHROPOIETIN
     Indication: PRODUCT USED FOR UNKNOWN INDICATION
     Dosage: 48000 IU WHILE AWAITING SURG.
  5. ALFENTANIL [Concomitant]
     Active Substance: ALFENTANIL
  6. OXYGEN. [Concomitant]
     Active Substance: OXYGEN
  7. ERYTHROPOIETIN [Suspect]
     Active Substance: ERYTHROPOIETIN
     Indication: PRODUCT USED FOR UNKNOWN INDICATION
     Dosage: 48,000 IU (ALTERNATE DAYS)
  8. TRANEXAMIC ACID. [Suspect]
     Active Substance: TRANEXAMIC ACID
     Indication: PRODUCT USED FOR UNKNOWN INDICATION
     Dosage: 3 GM (1 GM FOR 20 DAYS)
  9. VENOFER [Suspect]
     Active Substance: IRON SUCROSE
     Indication: GASTROINTESTINAL HAEMORRHAGE
     Dosage: 200 MG (ONE WEEK LATER) INTRAVENOUS
     Route: 042
  10. VENOFER [Suspect]
     Active Substance: IRON SUCROSE
     Indication: GASTROINTESTINAL HAEMORRHAGE
     Dosage: 1000 MG WHILE AWAITING SURGERY INTRAVENOUS
     Route: 042
  11. PROPOFOL. [Concomitant]
     Active Substance: PROPOFOL

REACTIONS (7)
  - Haemoglobin decreased [None]
  - Pyrexia [None]
  - Disorientation [None]
  - Procedural haemorrhage [None]
  - Staphylococcus test positive [None]
  - Confusional state [None]
  - Brain hypoxia [None]
